FAERS Safety Report 6575440-5 (Version None)
Quarter: 2010Q1

REPORT INFORMATION
  Report Type: 
  Country: None (occurrence: None)
  Receive Date: 20100208
  Receipt Date: 20100208
  Transmission Date: 20100710
  Serious: Yes (Life-Threatening, Other)
  Sender: FDA-Public Use
  Company Number: None

PATIENT
  Age: 46 Year
  Sex: Male
  Weight: 127.0072 kg

DRUGS (2)
  1. PREVACID [Suspect]
     Indication: HYPERCHLORHYDRIA
     Dosage: 15 MG DAILY BUCCAL
     Route: 002
     Dates: start: 20091224, end: 20100206
  2. PREVACID [Suspect]

REACTIONS (2)
  - HEART RATE IRREGULAR [None]
  - VENTRICULAR EXTRASYSTOLES [None]
